FAERS Safety Report 10206541 (Version 1)
Quarter: 2014Q2

REPORT INFORMATION
  Report Type: Spontaneous
  Country: US (occurrence: US)
  Receive Date: 20140530
  Receipt Date: 20140530
  Transmission Date: 20141212
  Serious: No
  Sender: FDA-Public Use
  Company Number: US-GLAXOSMITHKLINE-A1028041A

PATIENT
  Sex: Female

DRUGS (3)
  1. FLOLAN [Suspect]
     Indication: PULMONARY ARTERIAL HYPERTENSION
     Dosage: 24NGKM CONTINUOUS
     Route: 042
     Dates: start: 20130404
  2. ADHESIVE TAPE [Suspect]
  3. COUMADIN [Concomitant]

REACTIONS (5)
  - Myalgia [Unknown]
  - Pain in jaw [Unknown]
  - Skin irritation [Recovering/Resolving]
  - Application site irritation [Unknown]
  - Application site erythema [Unknown]
